FAERS Safety Report 17108978 (Version 1)
Quarter: 2019Q4

REPORT INFORMATION
  Report Type: Spontaneous
  Country: GB (occurrence: GB)
  Receive Date: 20191203
  Receipt Date: 20191203
  Transmission Date: 20200122
  Serious: Yes (Other)
  Sender: FDA-Public Use
  Company Number: GB-GALDERMA-GB19064264

PATIENT
  Age: 25 Year
  Sex: Female
  Weight: 54 kg

DRUGS (4)
  1. LYMECYCLINE [Suspect]
     Active Substance: LYMECYCLINE
     Indication: PRODUCT USED FOR UNKNOWN INDICATION
     Dosage: CUMULATIVE DOSE TO FIRST REACTION: 32 DOSAGE FORMS.
     Route: 065
     Dates: start: 20180629, end: 20180727
  2. ZINERYT [Concomitant]
     Indication: PRODUCT USED FOR UNKNOWN INDICATION
     Dates: start: 20180731
  3. RIGEVIDON [Concomitant]
     Indication: PRODUCT USED FOR UNKNOWN INDICATION
     Dosage: TAKE ONE AS DIRECTED
     Dates: start: 20180516
  4. EPIDUO [Suspect]
     Active Substance: ADAPALENE\BENZOYL PEROXIDE
     Indication: PRODUCT USED FOR UNKNOWN INDICATION
     Dosage: UNKNOWN?CUMULATIVE DOSE TO FIRST REACTION: 8 DOSAGE FORMS.
     Route: 065
     Dates: start: 20180723

REACTIONS (1)
  - Dermatitis allergic [Unknown]

NARRATIVE: CASE EVENT DATE: 20180731
